FAERS Safety Report 6669484-2 (Version None)
Quarter: 2010Q2

REPORT INFORMATION
  Report Type: 
  Country: None (occurrence: None)
  Receive Date: 20100406
  Receipt Date: 20100330
  Transmission Date: 20101027
  Serious: Yes (Other)
  Sender: FDA-Public Use
  Company Number: PHHY2010US18481

PATIENT
  Age: 82 Year
  Sex: Female

DRUGS (1)
  1. TOBI [Suspect]
     Indication: CYSTIC FIBROSIS
     Dosage: 300 MG, BID
     Dates: start: 20100121

REACTIONS (10)
  - ARTHRALGIA [None]
  - DECREASED APPETITE [None]
  - EXOPHTHALMOS [None]
  - JOINT SWELLING [None]
  - MEMORY IMPAIRMENT [None]
  - MYALGIA [None]
  - POLLAKIURIA [None]
  - RASH PAPULAR [None]
  - SYNCOPE [None]
  - WEIGHT DECREASED [None]
